FAERS Safety Report 7459003-5 (Version None)
Quarter: 2011Q2

REPORT INFORMATION
  Report Type: 
  Country: None (occurrence: None)
  Receive Date: 20110505
  Receipt Date: 20110426
  Transmission Date: 20111010
  Serious: Yes (Other)
  Sender: FDA-Public Use
  Company Number: US-BIOGENIDEC-2010BI044273

PATIENT
  Age: 58 Year
  Sex: Female
  Weight: 88 kg

DRUGS (11)
  1. OMEPRAZOLE [Concomitant]
  2. COMPAZINE [Concomitant]
  3. ZOFRAN [Concomitant]
  4. TYSABRI [Suspect]
     Indication: MULTIPLE SCLEROSIS
     Route: 042
     Dates: start: 20080515, end: 20101201
  5. EMLA [Concomitant]
     Route: 061
  6. ZANTAC [Concomitant]
  7. BACLOFEN [Concomitant]
  8. ACIDOPHILUS [Concomitant]
  9. PERCOCET [Concomitant]
  10. CRESTOR [Concomitant]
  11. VICODIN [Concomitant]

REACTIONS (1)
  - BREAST CANCER [None]
